FAERS Safety Report 7316340-2 (Version None)
Quarter: 2011Q1

REPORT INFORMATION
  Report Type: 
  Country: None (occurrence: None)
  Receive Date: 20110225
  Receipt Date: 20110218
  Transmission Date: 20110831
  Serious: Yes (Other)
  Sender: FDA-Public Use
  Company Number: US-US-EMD SERONO, INC.-7041645

PATIENT
  Sex: Female
  Weight: 64 kg

DRUGS (4)
  1. BIPOLAR MEDICATION [Concomitant]
     Indication: BIPOLAR DISORDER
  2. REBIF [Suspect]
     Indication: MULTIPLE SCLEROSIS
     Route: 058
     Dates: start: 20100521
  3. UNSPECIFIED MEDICATIONS [Concomitant]
  4. ADDERALL 10 [Concomitant]

REACTIONS (5)
  - BIPOLAR DISORDER [None]
  - UNEVALUABLE EVENT [None]
  - DEPRESSION [None]
  - INJECTION SITE ERYTHEMA [None]
  - CONCUSSION [None]
